FAERS Safety Report 18152833 (Version 1)
Quarter: 2020Q3

REPORT INFORMATION
  Report Type: Spontaneous
  Country: US (occurrence: US)
  Receive Date: 20200814
  Receipt Date: 20200814
  Transmission Date: 20201103
  Serious: No
  Sender: FDA-Public Use
  Company Number: US-MANNKIND CORPORATION-2020MK000025

PATIENT
  Age: 69 Year
  Sex: Female
  Weight: 69.01 kg

DRUGS (3)
  1. AFREZZA [Suspect]
     Active Substance: INSULIN HUMAN
     Indication: BLOOD GLUCOSE ABNORMAL
     Dates: start: 2019
  2. AFREZZA [Suspect]
     Active Substance: INSULIN HUMAN
     Dates: start: 2019
  3. TRESIBA [Concomitant]
     Active Substance: INSULIN DEGLUDEC
     Indication: BLOOD GLUCOSE ABNORMAL

REACTIONS (2)
  - Blood glucose fluctuation [Unknown]
  - Intentional product use issue [Recovered/Resolved]
